FAERS Safety Report 4497024-5 (Version None)
Quarter: 2004Q3

REPORT INFORMATION
  Report Type: 
  Country: None (occurrence: None)
  Receive Date: 20040928
  Receipt Date: 20040723
  Transmission Date: 20050211
  Serious: No
  Sender: FDA-Public Use
  Company Number: 04P-163-0267951-00

PATIENT
  Age: 65 Year
  Sex: Male

DRUGS (5)
  1. HUMIRA [Suspect]
     Indication: RHEUMATOID ARTHRITIS
     Dosage: SEE IMAGE
     Route: 058
     Dates: start: 20040101, end: 20040501
  2. HUMIRA [Suspect]
     Indication: RHEUMATOID ARTHRITIS
     Dosage: SEE IMAGE
     Route: 058
     Dates: start: 20040501, end: 20040722
  3. PREDNISONE [Concomitant]
  4. TOCOPHEROL CONCENTRATE CAP [Concomitant]
  5. MULTI-VITAMINS [Concomitant]

REACTIONS (4)
  - DIFFICULTY IN WALKING [None]
  - DRUG INEFFECTIVE [None]
  - JOINT SWELLING [None]
  - PAIN [None]
